FAERS Safety Report 12693544 (Version 1)
Quarter: 2016Q3

REPORT INFORMATION
  Report Type: Spontaneous
  Country: US (occurrence: None)
  Receive Date: 20160826
  Receipt Date: 20160826
  Transmission Date: 20161109
  Serious: No
  Sender: FDA-Public Use
  Company Number: None

PATIENT

DRUGS (1)
  1. XARELTO [Suspect]
     Active Substance: RIVAROXABAN

REACTIONS (4)
  - Diffuse alveolar damage [None]
  - Pulmonary haemorrhage [None]
  - Dyspnoea [None]
  - Haemodynamic instability [None]

NARRATIVE: CASE EVENT DATE: 2015
